FAERS Safety Report 16770378 (Version 1)
Quarter: 2019Q3

REPORT INFORMATION
  Report Type: Spontaneous
  Country: GB (occurrence: GB)
  Receive Date: 20190904
  Receipt Date: 20190904
  Transmission Date: 20191005
  Serious: Yes (Hospitalization, Disabling)
  Sender: FDA-Public Use
  Company Number: GB-TEVA-2019-GB-1100597

PATIENT
  Age: 23 Year
  Sex: Female
  Weight: 61 kg

DRUGS (12)
  1. NIFEDIPINE. [Suspect]
     Active Substance: NIFEDIPINE
     Indication: POSTURAL ORTHOSTATIC TACHYCARDIA SYNDROME
     Dosage: IN THE MORNING, 10 MG PER DAY
     Route: 048
     Dates: start: 20190723, end: 20190731
  2. IVABRADINE [Concomitant]
     Active Substance: IVABRADINE
  3. DIAZEPAM. [Concomitant]
     Active Substance: DIAZEPAM
  4. FEXOFENADINE [Concomitant]
     Active Substance: FEXOFENADINE HYDROCHLORIDE
  5. PARACETAMOL [Concomitant]
     Active Substance: ACETAMINOPHEN
  6. ORAMORPH [Concomitant]
     Active Substance: MORPHINE SULFATE
  7. NAPROXEN. [Concomitant]
     Active Substance: NAPROXEN
  8. DOMPERIDONE [Concomitant]
     Active Substance: DOMPERIDONE
  9. PREGABALIN. [Concomitant]
     Active Substance: PREGABALIN
  10. AMITRIPTYLINE [Concomitant]
     Active Substance: AMITRIPTYLINE
  11. ZOMORPH [Concomitant]
     Active Substance: MORPHINE SULFATE
  12. RABEPRAZOLE [Concomitant]
     Active Substance: RABEPRAZOLE

REACTIONS (2)
  - Joint contracture [Recovering/Resolving]
  - Arthralgia [Recovering/Resolving]
